FAERS Safety Report 17083120 (Version 1)
Quarter: 2019Q4

REPORT INFORMATION
  Report Type: Spontaneous
  Country: CN (occurrence: CN)
  Receive Date: 20191127
  Receipt Date: 20191127
  Transmission Date: 20200122
  Serious: Yes (Other)
  Sender: FDA-Public Use
  Company Number: CN-PFIZER INC-2019507767

PATIENT
  Age: 58 Year
  Sex: Male

DRUGS (2)
  1. VFEND [Suspect]
     Active Substance: VORICONAZOLE
     Indication: ANTIFUNGAL TREATMENT
     Dosage: 0.2 G, 2X/DAY (EVERY 12 HOURS)
     Route: 041
     Dates: start: 20191022, end: 20191107
  2. IMIPENEM AND CILASTATIN SODIUM [Concomitant]
     Active Substance: CILASTATIN SODIUM\IMIPENEM
     Indication: INFECTION
     Dosage: 1 G, 4X/DAY (EVERY 6 HOURS)
     Route: 041
     Dates: start: 20191031, end: 20191106

REACTIONS (5)
  - Seizure [Recovering/Resolving]
  - Dysphoria [Recovering/Resolving]
  - Mental disorder [Recovered/Resolved]
  - Drug level increased [Unknown]
  - Infection [Unknown]

NARRATIVE: CASE EVENT DATE: 20191031
